FAERS Safety Report 9426045 (Version 1)
Quarter: 2013Q3

REPORT INFORMATION
  Report Type: Spontaneous
  Country: GB (occurrence: GB)
  Receive Date: 20130730
  Receipt Date: 20130730
  Transmission Date: 20140515
  Serious: Yes (Hospitalization)
  Sender: FDA-Public Use
  Company Number: GB-JNJFOC-20130711214

PATIENT
  Age: 15 Year
  Sex: Female

DRUGS (2)
  1. PARACETAMOL [Suspect]
     Route: 048
  2. PARACETAMOL [Suspect]
     Indication: PRODUCT USED FOR UNKNOWN INDICATION
     Dosage: 56 TABLETS.
     Route: 048
     Dates: start: 20130607, end: 20130607

REACTIONS (2)
  - Liver function test abnormal [Unknown]
  - Intentional overdose [Unknown]
